FAERS Safety Report 6250212-X (Version None)
Quarter: 2009Q2

REPORT INFORMATION
  Report Type: 
  Country: None (occurrence: None)
  Receive Date: 20090630
  Receipt Date: 20071129
  Transmission Date: 20091009
  Serious: Yes (Other)
  Sender: FDA-Public Use
  Company Number: US-ASTRAZENECA-2007UW18989

PATIENT
  Age: 47 Year
  Sex: Male

DRUGS (8)
  1. SEROQUEL [Suspect]
     Indication: POST-TRAUMATIC STRESS DISORDER
     Route: 048
     Dates: start: 19980101, end: 20030101
  2. DEPAKOTE [Concomitant]
     Dates: start: 19980101
  3. GLUCOPHAGE [Concomitant]
     Dates: start: 20030505
  4. ASPIRIN [Concomitant]
     Dates: start: 20060316
  5. GLUCOVANCE [Concomitant]
     Dosage: 5/500 MG TWO TIMES A DAY
     Dates: start: 20060316
  6. ENALAPRIL MALEATE [Concomitant]
     Dosage: 2.5 MG TO 5 MG
     Dates: start: 20060316
  7. AVANDIA [Concomitant]
     Dates: start: 20070220
  8. HUMALOG [Concomitant]
     Dosage: 70/30, 14 UNITS TWO TIMES A DAY
     Dates: start: 20071026

REACTIONS (6)
  - DIABETES MELLITUS [None]
  - DIABETES MELLITUS INADEQUATE CONTROL [None]
  - DIABETIC NEPHROPATHY [None]
  - DIABETIC RETINOPATHY [None]
  - TYPE 1 DIABETES MELLITUS [None]
  - TYPE 2 DIABETES MELLITUS [None]
